FAERS Safety Report 5807850-5 (Version None)
Quarter: 2008Q3

REPORT INFORMATION
  Report Type: 
  Country: None (occurrence: None)
  Receive Date: 20080711
  Receipt Date: 20080704
  Transmission Date: 20090109
  Serious: Yes (Other)
  Sender: FDA-Public Use
  Company Number: ES-BOEHRINGER INGELHEIM GMBH, GERMANY-2008-ES-00604ES

PATIENT
  Sex: Male

DRUGS (5)
  1. SPIRIVA [Suspect]
     Indication: CHRONIC OBSTRUCTIVE PULMONARY DISEASE
     Route: 055
     Dates: start: 20080603, end: 20080620
  2. SINTROM [Concomitant]
  3. DAFLON [Concomitant]
  4. SERC [Concomitant]
  5. TRANGOREX [Concomitant]

REACTIONS (1)
  - APTYALISM [None]
